FAERS Safety Report 9918845 (Version 2)
Quarter: 2014Q1

REPORT INFORMATION
  Report Type: Spontaneous
  Country: GB (occurrence: GB)
  Receive Date: 20140224
  Receipt Date: 20140314
  Transmission Date: 20141002
  Serious: Yes (Other)
  Sender: FDA-Public Use
  Company Number: GB-BAYER-2014-025361

PATIENT
  Age: 43 Year
  Sex: Female
  Weight: 73 kg

DRUGS (1)
  1. CANESTEN 500MG VAGINAL PESSARY [Suspect]
     Indication: VULVOVAGINAL CANDIDIASIS
     Dosage: 500 MG, ONCE
     Dates: start: 20140209, end: 20140209

REACTIONS (2)
  - Vaginal haemorrhage [Recovering/Resolving]
  - Menorrhagia [Recovering/Resolving]
